FAERS Safety Report 6746297-4 (Version None)
Quarter: 2010Q2

REPORT INFORMATION
  Report Type: 
  Country: None (occurrence: None)
  Receive Date: 20100528
  Receipt Date: 20100519
  Transmission Date: 20101027
  Serious: Yes (Hospitalization)
  Sender: FDA-Public Use
  Company Number: NL-ABBOTT-10P-114-0646575-01

PATIENT
  Sex: Female
  Weight: 56 kg

DRUGS (32)
  1. HUMIRA [Suspect]
     Indication: CROHN'S DISEASE
     Route: 058
     Dates: start: 20071107, end: 20100301
  2. PANTAZOL [Concomitant]
     Indication: NAUSEA
     Dates: start: 20080903
  3. PANTAZOL [Concomitant]
     Indication: VOMITING
  4. PANTAZOL [Concomitant]
     Indication: DYSPEPSIA
  5. QUESTRAN [Concomitant]
     Indication: DIARRHOEA
     Dates: start: 20020101
  6. LOPERAMIDE [Concomitant]
     Indication: DIARRHOEA
     Dates: start: 20080803
  7. ERYTROMYCIN [Concomitant]
     Indication: IMPAIRED GASTRIC EMPTYING
     Dates: start: 20081104, end: 20090501
  8. METAMUCIL-2 [Concomitant]
     Indication: DIARRHOEA
     Dates: end: 20090501
  9. DOMPERIDON [Concomitant]
     Indication: NAUSEA
     Dates: start: 20090506
  10. DOMPERIDON [Concomitant]
     Indication: VOMITING
  11. TEMAZEPAM [Concomitant]
     Indication: ABDOMINAL PAIN
     Dates: start: 20090306
  12. TEMAZEPAM [Concomitant]
     Indication: INSOMNIA
  13. METHOTREXATE [Concomitant]
     Indication: CROHN'S DISEASE
     Dates: start: 20090121
  14. FOLIC ACID [Concomitant]
     Indication: VITAMIN SUPPLEMENTATION
     Dates: start: 20090121
  15. BUDESONIDE [Concomitant]
     Indication: CROHN'S DISEASE
     Dates: start: 20081217, end: 20090601
  16. BUDESONIDE [Concomitant]
     Dates: start: 20091211
  17. PREDNISONE TAB [Concomitant]
     Indication: CROHN'S DISEASE
     Dates: start: 20090217, end: 20090227
  18. DUSPATAL [Concomitant]
     Indication: CROHN'S DISEASE
  19. CIPROXIN [Concomitant]
     Indication: CROHN'S DISEASE
     Dates: start: 20090401, end: 20091201
  20. PSYLLIUM [Concomitant]
     Indication: CONSTIPATION
     Dates: start: 20090401
  21. TRAMAL [Concomitant]
     Indication: ABDOMINAL PAIN
  22. PARACETAMOL [Concomitant]
     Indication: ABDOMINAL PAIN
  23. FOSAMAX [Concomitant]
     Indication: OSTEOPENIA
     Dates: start: 20080101
  24. FERROUS FUMARATE [Concomitant]
     Indication: MINERAL SUPPLEMENTATION
     Dates: start: 20050101, end: 20091101
  25. IMURAN [Concomitant]
     Indication: CROHN'S DISEASE
     Dates: end: 20090601
  26. MAGNESIUM HYDROXIDE TAB [Concomitant]
     Indication: DRUG USE FOR UNKNOWN INDICATION
     Dates: start: 20090505, end: 20090510
  27. METRONIDAZOLE [Concomitant]
     Indication: INFECTION PROPHYLAXIS
     Dates: start: 20090505, end: 20090505
  28. CEFUROXIME [Concomitant]
     Indication: INFECTION PROPHYLAXIS
     Dates: start: 20090505, end: 20090505
  29. FRAXIPARINE [Concomitant]
     Indication: DRUG USE FOR UNKNOWN INDICATION
     Dosage: 2850IE QD
     Dates: start: 20090305, end: 20090510
  30. HYDROCORTISONE [Concomitant]
     Indication: CROHN'S DISEASE
     Dates: start: 20090505, end: 20100507
  31. METOCLOPRAMIDE [Concomitant]
     Indication: NAUSEA
     Dates: start: 20090508, end: 20090510
  32. DICLOFENAC [Concomitant]
     Indication: PAIN
     Dates: start: 20090308, end: 20090510

REACTIONS (2)
  - DIARRHOEA [None]
  - VOMITING [None]
